FAERS Safety Report 10659591 (Version 4)
Quarter: 2015Q1

REPORT INFORMATION
  Report Type: Spontaneous
  Country: US (occurrence: US)
  Receive Date: 20141217
  Receipt Date: 20150114
  Transmission Date: 20150720
  Serious: No
  Sender: FDA-Public Use
  Company Number: US-GLAXOSMITHKLINE-A1076495A

PATIENT
  Age: 81 Year
  Sex: Male

DRUGS (3)
  1. VOTRIENT [Suspect]
     Active Substance: PAZOPANIB HYDROCHLORIDE
     Dosage: 200 MG, U
  2. VOTRIENT [Suspect]
     Active Substance: PAZOPANIB HYDROCHLORIDE
     Dosage: UNK
     Dates: start: 20140408, end: 20140806
  3. VOTRIENT [Suspect]
     Active Substance: PAZOPANIB HYDROCHLORIDE
     Indication: NEOPLASM MALIGNANT
     Dosage: ON F/U 200MG TABLETS UNKNOWN DOSING
     Route: 048
     Dates: start: 20140408, end: 20140806

REACTIONS (8)
  - Asthenia [Unknown]
  - Fatigue [Unknown]
  - Weight decreased [Unknown]
  - Drug ineffective [Unknown]
  - Disease progression [Unknown]
  - Decreased appetite [Unknown]
  - Dehydration [Unknown]
  - Eye swelling [Unknown]

NARRATIVE: CASE EVENT DATE: 20140604
